FAERS Safety Report 24169430 (Version 1)
Quarter: 2024Q3

REPORT INFORMATION
  Report Type: Report from Study
  Country: US (occurrence: US)
  Receive Date: 20240802
  Receipt Date: 20240802
  Transmission Date: 20241017
  Serious: Yes (Other)
  Sender: COVIS PHARMA
  Company Number: US-Covis Pharma GmbH-2024COV00872

PATIENT
  Sex: Female

DRUGS (22)
  1. PRILOSEC [Suspect]
     Active Substance: OMEPRAZOLE MAGNESIUM
  2. TAGRISSO [Suspect]
     Active Substance: OSIMERTINIB
     Indication: Lung carcinoma cell type unspecified stage 0
     Route: 048
  3. METFORMIN HYDROCHLORIDE [Concomitant]
     Active Substance: METFORMIN HYDROCHLORIDE
  4. PROAIR HFA [Concomitant]
     Active Substance: ALBUTEROL SULFATE
  5. DEXAMETHASONE [Concomitant]
     Active Substance: DEXAMETHASONE
  6. SIMVASTATIN [Concomitant]
     Active Substance: SIMVASTATIN
  7. LANTUS [Concomitant]
     Active Substance: INSULIN GLARGINE
  8. PAXIL [Concomitant]
     Active Substance: PAROXETINE HYDROCHLORIDE
  9. CREON [Concomitant]
     Active Substance: PANCRELIPASE AMYLASE\PANCRELIPASE LIPASE\PANCRELIPASE PROTEASE
  10. ELAVIL [Concomitant]
     Active Substance: AMITRIPTYLINE HYDROCHLORIDE
  11. IRON [Concomitant]
     Active Substance: IRON
  12. FLOVENT [Concomitant]
     Active Substance: FLUTICASONE PROPIONATE
  13. AMLODIPINE BESYLATE [Concomitant]
     Active Substance: AMLODIPINE BESYLATE
  14. LOSARTAN POTASSIUM [Concomitant]
     Active Substance: LOSARTAN POTASSIUM
  15. WARFARIN SODIUM [Concomitant]
     Active Substance: WARFARIN SODIUM
  16. AMMONIUM LACTATE [Concomitant]
     Active Substance: AMMONIUM LACTATE
  17. GABAPENTIN [Concomitant]
     Active Substance: GABAPENTIN
  18. DILAUDID [Concomitant]
     Active Substance: HYDROMORPHONE HYDROCHLORIDE
  19. CLOBETASOL PROPIONATE [Concomitant]
     Active Substance: CLOBETASOL PROPIONATE
  20. CARVEDILOL [Concomitant]
     Active Substance: CARVEDILOL
  21. ASPIRIN [Concomitant]
     Active Substance: ASPIRIN
  22. HUMALOG [Concomitant]
     Active Substance: INSULIN LISPRO

REACTIONS (3)
  - Cerebrovascular accident [Unknown]
  - Dysarthria [Unknown]
  - Gait disturbance [Unknown]
